FAERS Safety Report 5853497-4 (Version None)
Quarter: 2008Q3

REPORT INFORMATION
  Report Type: 
  Country: None (occurrence: None)
  Receive Date: 20080818
  Receipt Date: 20080430
  Transmission Date: 20090109
  Serious: No
  Sender: FDA-Public Use
  Company Number: WAES 0805USA00148

PATIENT
  Age: 75 Year
  Sex: Male
  Weight: 112.4921 kg

DRUGS (3)
  1. JANUVIA [Suspect]
     Indication: TYPE 2 DIABETES MELLITUS
     Dosage: 100 MG/DAILY/PO
     Route: 048
     Dates: start: 20080314, end: 20080430
  2. JANUVIA [Suspect]
     Indication: TYPE 2 DIABETES MELLITUS
     Dosage: 100 MG/DAILY/PO
     Route: 048
     Dates: start: 20080514, end: 20080521
  3. THERAPY UNSPECIFIED [Concomitant]

REACTIONS (3)
  - RASH [None]
  - SWELLING [None]
  - URTICARIA [None]
